FAERS Safety Report 10758279 (Version 1)
Quarter: 2015Q1

REPORT INFORMATION
  Report Type: Spontaneous
  Country: BR (occurrence: BR)
  Receive Date: 20150203
  Receipt Date: 20150203
  Transmission Date: 20150721
  Serious: Yes (Other)
  Sender: FDA-Public Use
  Company Number: BR-PFIZER INC-2015041011

PATIENT
  Age: 77 Year
  Sex: Female
  Weight: 54 kg

DRUGS (2)
  1. CELEBRA [Suspect]
     Active Substance: CELECOXIB
     Indication: SCIATICA
     Dosage: 200 MG, CYCLIC (PATIENT INFORMS THAT SHE TAKES 1 TABLET FOR 5 DAYS IN A ROW AND AFTERWARDS SHE STOPS
     Route: 048
     Dates: start: 1995
  2. CELEBRA [Suspect]
     Active Substance: CELECOXIB
     Indication: SPINAL DISORDER

REACTIONS (1)
  - Arthropathy [Unknown]

NARRATIVE: CASE EVENT DATE: 201307
